FAERS Safety Report 14526595 (Version 1)
Quarter: 2018Q1

REPORT INFORMATION
  Report Type: Spontaneous
  Country: None (occurrence: DK)
  Receive Date: 20180213
  Receipt Date: 20180213
  Transmission Date: 20180509
  Serious: Yes (Other)
  Sender: FDA-Public Use
  Company Number: DK-ALSI-201800097

PATIENT
  Age: 71 Year
  Sex: Female

DRUGS (1)
  1. MEDICINSK OXYGEN AIR LIQUIDE 100%, MEDICINSK GAS KOMPRIMERET (OXYGEN) [Suspect]
     Active Substance: OXYGEN
     Indication: CHRONIC OBSTRUCTIVE PULMONARY DISEASE
     Route: 055

REACTIONS (4)
  - Device malfunction [None]
  - Product quality issue [Recovered/Resolved]
  - Accidental underdose [Recovered/Resolved]
  - Oxygen saturation decreased [Recovered/Resolved]
